FAERS Safety Report 10956948 (Version 1)
Quarter: 2015Q1

REPORT INFORMATION
  Report Type: Spontaneous
  Country: AU (occurrence: None)
  Receive Date: 20150324
  Receipt Date: 20150324
  Transmission Date: 20150721
  Serious: Yes (Hospitalization, Other)
  Sender: FDA-Public Use
  Company Number: AU2015GSK033233

PATIENT
  Age: 36 Year
  Sex: Male

DRUGS (10)
  1. TIVICAY [Suspect]
     Active Substance: DOLUTEGRAVIR SODIUM
     Indication: HIV INFECTION
  2. ATAZANAVIR (ATAZANAVIR) [Suspect]
     Active Substance: ATAZANAVIR
     Indication: HIV INFECTION
     Dates: start: 2006
  3. PRISTIQ (DESVENLAFAXINE SUCCINATE) [Concomitant]
     Active Substance: DESVENLAFAXINE SUCCINATE
  4. TRUVADA [Suspect]
     Active Substance: EMTRICITABINE\TENOFOVIR DISOPROXIL FUMARATE
     Indication: HIV INFECTION
     Dates: start: 2006
  5. DARUNAVIR (DARUNAVIR) [Suspect]
     Active Substance: DARUNAVIR
     Indication: HIV INFECTION
  6. NEVIRAPINE (NEVIRAPINE) [Suspect]
     Active Substance: NEVIRAPINE
     Indication: HIV INFECTION
     Dates: start: 2010
  7. QUETIAPINE (QUETIAPINE) [Concomitant]
     Active Substance: QUETIAPINE
  8. CARBAMAZEPINE (CARBAMAZEPINE) UNKNOWN [Suspect]
     Active Substance: CARBAMAZEPINE
     Indication: PRODUCT USED FOR UNKNOWN INDICATION
  9. RITONAVIR (RITONAVIR) UNKNOWN [Suspect]
     Active Substance: RITONAVIR
     Indication: HIV INFECTION
     Dates: start: 2006
  10. LAMIVUDINE (LAMIVUDINE) UNKNOWN [Suspect]
     Active Substance: LAMIVUDINE
     Indication: HIV INFECTION

REACTIONS (17)
  - Suicidal ideation [None]
  - Fibrosis [None]
  - Toxicity to various agents [None]
  - Pancreatitis [None]
  - Intentional self-injury [None]
  - Stab wound [None]
  - Skeletal injury [None]
  - Osteoporosis [None]
  - Asthenia [None]
  - Liver function test abnormal [None]
  - Diarrhoea [None]
  - Vitamin D deficiency [None]
  - Injury [None]
  - Somnolence [None]
  - Fall [None]
  - Clumsiness [None]
  - Ataxia [None]

NARRATIVE: CASE EVENT DATE: 2006
